FAERS Safety Report 14694529 (Version 1)
Quarter: 2018Q1

REPORT INFORMATION
  Report Type: Spontaneous
  Country: US (occurrence: US)
  Receive Date: 20180328
  Receipt Date: 20180328
  Transmission Date: 20180509
  Serious: No
  Sender: FDA-Public Use
  Company Number: None

PATIENT
  Age: 38 Year
  Sex: Male
  Weight: 72 kg

DRUGS (2)
  1. BUPROPION. [Suspect]
     Active Substance: BUPROPION
     Indication: ATTENTION DEFICIT/HYPERACTIVITY DISORDER
     Dosage: ?          QUANTITY:1 TABLET(S);?
     Route: 048
     Dates: start: 20180325, end: 20180326
  2. BUPROPION. [Suspect]
     Active Substance: BUPROPION
     Indication: PRODUCT USED FOR UNKNOWN INDICATION
     Dosage: ?          QUANTITY:1 TABLET(S);?
     Route: 048
     Dates: start: 20180325, end: 20180326

REACTIONS (11)
  - Euphoric mood [None]
  - Nightmare [None]
  - Headache [None]
  - Insomnia [None]
  - Hallucination [None]
  - Dizziness [None]
  - Hot flush [None]
  - Abnormal dreams [None]
  - Thinking abnormal [None]
  - Off label use [None]
  - Tinnitus [None]

NARRATIVE: CASE EVENT DATE: 20180326
